FAERS Safety Report 11584296 (Version 1)
Quarter: 2015Q4

REPORT INFORMATION
  Report Type: Spontaneous
  Country: US (occurrence: US)
  Receive Date: 20151001
  Receipt Date: 20151001
  Transmission Date: 20160304
  Serious: No
  Sender: FDA-Public Use
  Company Number: US-ROCHE-665443

PATIENT
  Sex: Female

DRUGS (2)
  1. PEGASYS [Suspect]
     Active Substance: PEGINTERFERON ALFA-2A
     Indication: HEPATITIS C
     Dosage: DATES OF USE: 60 DAYS
     Route: 058
  2. RIBASPHERE [Suspect]
     Active Substance: RIBAVIRIN
     Indication: HEPATITIS C
     Dosage: 2 TABS IN AM AND 3 TABS IN PM
     Route: 048

REACTIONS (6)
  - Malaise [Not Recovered/Not Resolved]
  - Dry mouth [Not Recovered/Not Resolved]
  - Hepatic pain [Not Recovered/Not Resolved]
  - Nervousness [Not Recovered/Not Resolved]
  - Emotional disorder [Not Recovered/Not Resolved]
  - Sinus congestion [Not Recovered/Not Resolved]

NARRATIVE: CASE EVENT DATE: 200910
